FAERS Safety Report 21110379 (Version 2)
Quarter: 2022Q4

REPORT INFORMATION
  Report Type: Report from Study
  Country: US (occurrence: US)
  Receive Date: 20220721
  Receipt Date: 20221011
  Transmission Date: 20230113
  Serious: No
  Sender: FDA-Public Use
  Company Number: US-NOVARTISTESTPH-NVSC2022US164675

PATIENT
  Sex: Male

DRUGS (1)
  1. COSENTYX [Suspect]
     Active Substance: SECUKINUMAB
     Indication: Ankylosing spondylitis
     Dosage: 150 MG, QW (FOR 4 WEEKS THEN QMO)
     Route: 058
     Dates: start: 202206

REACTIONS (2)
  - Condition aggravated [Not Recovered/Not Resolved]
  - Inappropriate schedule of product administration [Unknown]
